FAERS Safety Report 25824521 (Version 4)
Quarter: 2025Q4

REPORT INFORMATION
  Report Type: Report from Study
  Country: CN (occurrence: CN)
  Receive Date: 20250919
  Receipt Date: 20251218
  Transmission Date: 20260118
  Serious: Yes (Other)
  Sender: PFIZER
  Company Number: CN-PFIZER INC-PV202500112144

PATIENT
  Age: 43 Year
  Sex: Male

DRUGS (2)
  1. XYNTHA [Suspect]
     Active Substance: MOROCTOCOG ALFA
     Indication: Haemophilia
     Dosage: UNK
  2. XYNTHA [Suspect]
     Active Substance: MOROCTOCOG ALFA
     Dosage: ONCE EVERY OTHER DAY

REACTIONS (6)
  - Knee arthroplasty [Unknown]
  - Haemarthrosis [Unknown]
  - Joint effusion [Unknown]
  - Arthrofibrosis [Unknown]
  - Joint swelling [Unknown]
  - Arthralgia [Unknown]

NARRATIVE: CASE EVENT DATE: 20251211
